FAERS Safety Report 8978333 (Version 1)
Quarter: 2012Q4

REPORT INFORMATION
  Report Type: 
  Country: US (occurrence: US)
  Receive Date: 20121221
  Receipt Date: 20121221
  Transmission Date: 20130627
  Serious: Yes (Congenital Anomaly, Other)
  Sender: FDA-Public Use
  Company Number: US-JNJFOC-20121207920

PATIENT

DRUGS (5)
  1. DOXORUBICIN [Suspect]
     Indication: FOETAL EXPOSURE DURING PREGNANCY
     Route: 064
  2. CYCLOPHOSPHAMIDE [Suspect]
     Indication: FOETAL EXPOSURE DURING PREGNANCY
     Route: 064
  3. PACLITAXEL [Suspect]
     Indication: FOETAL EXPOSURE DURING PREGNANCY
     Route: 064
  4. DOCETAXEL [Suspect]
     Indication: FOETAL EXPOSURE DURING PREGNANCY
     Dosage: 75-100 mg/m2
     Route: 064
  5. DACTINOMYCIN [Suspect]
     Indication: FOETAL EXPOSURE DURING PREGNANCY
     Route: 064

REACTIONS (2)
  - Pyloric stenosis [Recovered/Resolved]
  - Neutropenia [Recovered/Resolved]
